FAERS Safety Report 20347366 (Version 7)
Quarter: 2023Q1

REPORT INFORMATION
  Report Type: Report from Study
  Country: IT (occurrence: None)
  Receive Date: 20220118
  Receipt Date: 20230210
  Transmission Date: 20230418
  Serious: Yes (Death)
  Sender: FDA-Public Use
  Company Number: IT-ROCHE-2993071

PATIENT
  Age: 76 Year
  Sex: Female
  Weight: 52 kg

DRUGS (41)
  1. VENETOCLAX [Suspect]
     Active Substance: VENETOCLAX
     Indication: Diffuse large B-cell lymphoma
     Dosage: DATE OF MOST RECENT DOSE OF VENETOCLAX PRIOR TO AE AND SAE- 20/DEC/2021 (800 MG)
     Route: 048
     Dates: start: 20211107
  2. POLATUZUMAB VEDOTIN [Suspect]
     Active Substance: POLATUZUMAB VEDOTIN
     Indication: Diffuse large B-cell lymphoma
     Dosage: DATE OF MOST RECENT DOSE OF STUDY DRUG PRIOR TO AE AND SAE- 16/DEC/2021 (90 MG)
     Route: 042
     Dates: start: 20211104
  3. RITUXIMAB [Suspect]
     Active Substance: RITUXIMAB
     Indication: Diffuse large B-cell lymphoma
     Dosage: DATE OF MOST RECENT DOSE OF STUDY DRUG PRIOR TO AE AND SAE- 16/DEC/2021 (375 MG)
     Route: 042
     Dates: start: 20211104
  4. PREDNISONE [Suspect]
     Active Substance: PREDNISONE
     Indication: Diffuse large B-cell lymphoma
     Dosage: DATE OF MOST RECENT DOSE OF PREDNISONE PRIOR TO AE AND SAE- 20/DEC/2021 (100 MG)
     Route: 048
     Dates: start: 20211105
  5. CYCLOPHOSPHAMIDE [Suspect]
     Active Substance: CYCLOPHOSPHAMIDE
     Indication: Diffuse large B-cell lymphoma
     Dosage: DATE OF MOST RECENT DOSE OF CYCLOPHOSPHAMIDE PRIOR TO AE AND SAE- 16/DEC/2021 (1150 MG)
     Route: 042
     Dates: start: 20211104
  6. DOXORUBICIN [Suspect]
     Active Substance: DOXORUBICIN
     Indication: Diffuse large B-cell lymphoma
     Dosage: DATE OF MOST RECENT DOSE OF DOXORUBICIN PRIOR TO AE- 16/DEC/2021 (75 MG)
     Route: 042
     Dates: start: 20211104
  7. METHYLPREDNISOLONE [Suspect]
     Active Substance: METHYLPREDNISOLONE
     Indication: Diffuse large B-cell lymphoma
     Dosage: DATE OF MOST RECENT DOSE OF METHYLPREDNISOLONE PRIOR TO AE AND SAE- 16/DEC/2021 (80 MG)
     Route: 042
     Dates: start: 20211104
  8. PREDNISOLONE [Suspect]
     Active Substance: PREDNISOLONE
     Indication: Diffuse large B-cell lymphoma
     Route: 065
     Dates: start: 20211125
  9. RAMIPRIL [Concomitant]
     Active Substance: RAMIPRIL
     Indication: Hypertension
     Route: 048
     Dates: start: 20211224
  10. BISOPROLOL [Concomitant]
     Active Substance: BISOPROLOL
     Indication: Hypertension
     Route: 048
     Dates: end: 20211224
  11. XARELTO [Concomitant]
     Active Substance: RIVAROXABAN
     Route: 048
     Dates: end: 20211224
  12. LOPERAMIDE [Concomitant]
     Active Substance: LOPERAMIDE
     Indication: Diarrhoea
     Dosage: NEXT DOSE ON: 16-DEC-2021
     Route: 048
     Dates: start: 20211127, end: 20211127
  13. LOPERAMIDE [Concomitant]
     Active Substance: LOPERAMIDE
     Dosage: NEXT DOSE ON: 16-DEC-2021
     Route: 048
     Dates: start: 20211217, end: 20211219
  14. OMEPRAZOLE SODIUM [Concomitant]
     Active Substance: OMEPRAZOLE SODIUM
     Indication: Abdominal pain upper
     Route: 042
     Dates: start: 20211125, end: 20211130
  15. ENOXAPARIN SODIUM [Concomitant]
     Active Substance: ENOXAPARIN SODIUM
     Route: 058
     Dates: start: 20211129, end: 20211129
  16. ENOXAPARIN SODIUM [Concomitant]
     Active Substance: ENOXAPARIN SODIUM
     Route: 058
     Dates: start: 20211130, end: 20211224
  17. OMEPRAZOLE [Concomitant]
     Active Substance: OMEPRAZOLE
     Route: 048
     Dates: start: 20211201, end: 20211201
  18. PANTOPRAZOLE [Concomitant]
     Active Substance: PANTOPRAZOLE
     Route: 048
     Dates: start: 20211202, end: 20211224
  19. MYCOSTATIN [Concomitant]
     Active Substance: NYSTATIN
     Route: 048
     Dates: start: 20211202, end: 20211208
  20. FILGRASTIM [Concomitant]
     Active Substance: FILGRASTIM
     Route: 058
     Dates: start: 20211217, end: 20211223
  21. FILGRASTIM [Concomitant]
     Active Substance: FILGRASTIM
     Route: 058
     Dates: start: 20211128, end: 20211204
  22. SODIUM CHLORIDE [Concomitant]
     Active Substance: SODIUM CHLORIDE
     Indication: Hyponatraemia
     Route: 042
     Dates: start: 20211207, end: 20211207
  23. KCL [Concomitant]
     Active Substance: POTASSIUM CHLORIDE
     Indication: Hypokalaemia
     Dosage: DOSE 40 OTHER
     Route: 042
     Dates: start: 20211207, end: 20211207
  24. CACL2 [Concomitant]
     Indication: Hypocalcaemia
     Dosage: NEXT DOE RECEIVED ON 12/DEC/2021
     Route: 042
     Dates: start: 20211207, end: 20211207
  25. CACL2 [Concomitant]
     Route: 042
     Dates: start: 20211212, end: 20211212
  26. ALBUMIN HUMAN [Concomitant]
     Active Substance: ALBUMIN HUMAN
     Indication: Hypoalbuminaemia
     Route: 042
     Dates: start: 20211209, end: 20211219
  27. PIPERACILLIN SODIUM\TAZOBACTAM SODIUM [Concomitant]
     Active Substance: PIPERACILLIN SODIUM\TAZOBACTAM SODIUM
     Indication: Infection
     Route: 042
     Dates: start: 20211209, end: 20211210
  28. MEROPENEM [Concomitant]
     Active Substance: MEROPENEM
     Indication: Anaemia
     Route: 042
     Dates: start: 20211209, end: 20211209
  29. MEROPENEM [Concomitant]
     Active Substance: MEROPENEM
     Route: 042
     Dates: start: 20211211, end: 20211211
  30. LASIX [Concomitant]
     Active Substance: FUROSEMIDE
     Indication: Oedema
     Route: 048
     Dates: start: 20211213, end: 20211215
  31. LUVION (ITALY) [Concomitant]
     Indication: Oedema
     Route: 042
     Dates: start: 20211210, end: 20211219
  32. RINGER LATTATO [Concomitant]
     Route: 042
     Dates: start: 20211207, end: 20211207
  33. RINGER LATTATO [Concomitant]
     Route: 042
     Dates: start: 20211209, end: 20211210
  34. ISOCEF (ITALY) [Concomitant]
     Indication: Prophylaxis
     Route: 048
     Dates: start: 20211221, end: 20211224
  35. DIPHENHYDRAMINE HYDROCHLORIDE [Concomitant]
     Active Substance: DIPHENHYDRAMINE HYDROCHLORIDE
     Route: 048
     Dates: start: 20211125, end: 20211125
  36. DIPHENHYDRAMINE HYDROCHLORIDE [Concomitant]
     Active Substance: DIPHENHYDRAMINE HYDROCHLORIDE
     Route: 048
     Dates: start: 20211216, end: 20211216
  37. TARGOSID [Concomitant]
     Active Substance: TEICOPLANIN
     Indication: Infection
     Route: 042
     Dates: start: 20211209, end: 20211215
  38. HUMAN RED BLOOD CELL [Concomitant]
     Active Substance: HUMAN RED BLOOD CELL
     Indication: Anaemia
     Route: 042
     Dates: start: 20211209, end: 20211209
  39. HUMAN RED BLOOD CELL [Concomitant]
     Active Substance: HUMAN RED BLOOD CELL
     Route: 042
     Dates: start: 20211211, end: 20211211
  40. ACETAMINOPHEN [Concomitant]
     Active Substance: ACETAMINOPHEN
     Route: 048
     Dates: start: 20211125, end: 20211125
  41. ACETAMINOPHEN [Concomitant]
     Active Substance: ACETAMINOPHEN
     Route: 048
     Dates: start: 20211216, end: 20211216

REACTIONS (1)
  - Sudden cardiac death [Fatal]

NARRATIVE: CASE EVENT DATE: 20211224
